FAERS Safety Report 7327186-3 (Version None)
Quarter: 2011Q1

REPORT INFORMATION
  Report Type: 
  Country: None (occurrence: None)
  Receive Date: 20110218
  Receipt Date: 20110207
  Transmission Date: 20110831
  Serious: Yes (Death)
  Sender: FDA-Public Use
  Company Number: 2011000655

PATIENT
  Age: 53 Year
  Sex: Female

DRUGS (3)
  1. BETO ZK (METOPROLOL) [Concomitant]
  2. FRAGMIN [Concomitant]
  3. ERLOTINIB(ERLOTINIB) (TABLET) (ERLOTINIB) [Suspect]
     Indication: NON-SMALL CELL LUNG CANCER
     Dosage: 9150 MG,DAILY), ORAL
     Route: 048
     Dates: start: 20100103

REACTIONS (2)
  - BLOOD LACTATE DEHYDROGENASE INCREASED [None]
  - PNEUMONIA [None]
